FAERS Safety Report 9728101 (Version 3)
Quarter: 2014Q2

REPORT INFORMATION
  Report Type: Spontaneous
  Country: DE (occurrence: DE)
  Receive Date: 20131204
  Receipt Date: 20140611
  Transmission Date: 20141212
  Serious: Yes (Other)
  Sender: FDA-Public Use
  Company Number: PHHY2013DE132543

PATIENT
  Sex: Male
  Weight: 59 kg

DRUGS (1)
  1. GILENYA [Suspect]
     Indication: MULTIPLE SCLEROSIS
     Dosage: 0.5 MG, UNK
     Route: 048
     Dates: start: 201301

REACTIONS (2)
  - Weight decreased [Not Recovered/Not Resolved]
  - Lymphopenia [Not Recovered/Not Resolved]
